FAERS Safety Report 21410266 (Version 4)
Quarter: 2023Q1

REPORT INFORMATION
  Report Type: Report from Study
  Country: IE (occurrence: IE)
  Receive Date: 20221005
  Receipt Date: 20230130
  Transmission Date: 20230418
  Serious: Yes (Hospitalization, Other)
  Sender: FDA-Public Use
  Company Number: IE-NOVARTISPH-NVSC2022IE220780

PATIENT
  Age: 71 Year
  Sex: Female

DRUGS (2)
  1. KESIMPTA [Suspect]
     Active Substance: OFATUMUMAB
     Indication: Relapsing-remitting multiple sclerosis
     Dosage: 20 MG, QMO
     Route: 058
     Dates: start: 20220808, end: 202210
  2. KESIMPTA [Suspect]
     Active Substance: OFATUMUMAB
     Indication: Multiple sclerosis

REACTIONS (6)
  - Palpitations [Not Recovered/Not Resolved]
  - Cardiac disorder [Unknown]
  - Fall [Recovering/Resolving]
  - Pain [Unknown]
  - Fluid retention [Unknown]
  - Influenza [Unknown]

NARRATIVE: CASE EVENT DATE: 20220901
